FAERS Safety Report 20086526 (Version 1)
Quarter: 2021Q4

REPORT INFORMATION
  Report Type: Spontaneous
  Country: US (occurrence: None)
  Receive Date: 20211118
  Receipt Date: 20211118
  Transmission Date: 20220304
  Serious: Yes (Hospitalization)
  Sender: FDA-Public Use
  Company Number: None

PATIENT
  Age: 44 Year
  Sex: Female
  Weight: 69.7 kg

DRUGS (1)
  1. XELODA [Suspect]
     Active Substance: CAPECITABINE
     Dosage: FREQUENCY : TWICE A DAY;?
     Route: 048
     Dates: start: 20211108, end: 20211116

REACTIONS (7)
  - Stomatitis [None]
  - Oral candidiasis [None]
  - Nausea [None]
  - Vomiting [None]
  - Abdominal pain [None]
  - Tachycardia [None]
  - Pyrexia [None]

NARRATIVE: CASE EVENT DATE: 20211116
